FAERS Safety Report 19890456 (Version 3)
Quarter: 2021Q4

REPORT INFORMATION
  Report Type: Report from Study
  Country: US (occurrence: US)
  Receive Date: 20210927
  Receipt Date: 20211208
  Transmission Date: 20220303
  Serious: Yes (Hospitalization, Other)
  Sender: FDA-Public Use
  Company Number: US-TAKEDA-2021TUS057880

PATIENT
  Age: 59 Year
  Sex: Female
  Weight: 59 kg

DRUGS (16)
  1. TEDUGLUTIDE [Suspect]
     Active Substance: TEDUGLUTIDE
     Indication: Short-bowel syndrome
     Dosage: 3.05 MILLIGRAM, QD
     Route: 058
     Dates: start: 20210812
  2. TEDUGLUTIDE [Suspect]
     Active Substance: TEDUGLUTIDE
     Indication: Short-bowel syndrome
     Dosage: 3.05 MILLIGRAM, QD
     Route: 058
     Dates: start: 20210812
  3. TEDUGLUTIDE [Suspect]
     Active Substance: TEDUGLUTIDE
     Indication: Short-bowel syndrome
     Dosage: 3.05 MILLIGRAM, QD
     Route: 058
     Dates: start: 20210812
  4. TEDUGLUTIDE [Suspect]
     Active Substance: TEDUGLUTIDE
     Indication: Short-bowel syndrome
     Dosage: 3.05 MILLIGRAM, QD
     Route: 058
     Dates: start: 20210812
  5. TEDUGLUTIDE [Suspect]
     Active Substance: TEDUGLUTIDE
     Indication: Crohn^s disease
     Dosage: 3.05 MILLIGRAM, QD
     Route: 058
     Dates: start: 20210813
  6. TEDUGLUTIDE [Suspect]
     Active Substance: TEDUGLUTIDE
     Indication: Crohn^s disease
     Dosage: 3.05 MILLIGRAM, QD
     Route: 058
     Dates: start: 20210813
  7. TEDUGLUTIDE [Suspect]
     Active Substance: TEDUGLUTIDE
     Indication: Crohn^s disease
     Dosage: 3.05 MILLIGRAM, QD
     Route: 058
     Dates: start: 20210813
  8. TEDUGLUTIDE [Suspect]
     Active Substance: TEDUGLUTIDE
     Indication: Crohn^s disease
     Dosage: 3.05 MILLIGRAM, QD
     Route: 058
     Dates: start: 20210813
  9. TEDUGLUTIDE [Suspect]
     Active Substance: TEDUGLUTIDE
     Indication: Fistula
     Dosage: 0.305 MILLILITER
     Route: 058
     Dates: start: 20210813
  10. TEDUGLUTIDE [Suspect]
     Active Substance: TEDUGLUTIDE
     Indication: Fistula
     Dosage: 0.305 MILLILITER
     Route: 058
     Dates: start: 20210813
  11. TEDUGLUTIDE [Suspect]
     Active Substance: TEDUGLUTIDE
     Indication: Fistula
     Dosage: 0.305 MILLILITER
     Route: 058
     Dates: start: 20210813
  12. TEDUGLUTIDE [Suspect]
     Active Substance: TEDUGLUTIDE
     Indication: Fistula
     Dosage: 0.305 MILLILITER
     Route: 058
     Dates: start: 20210813
  13. TEDUGLUTIDE [Suspect]
     Active Substance: TEDUGLUTIDE
     Dosage: 1.2 MILLIGRAM
     Route: 058
     Dates: start: 20210815, end: 20210928
  14. TEDUGLUTIDE [Suspect]
     Active Substance: TEDUGLUTIDE
     Dosage: 1.2 MILLIGRAM
     Route: 058
     Dates: start: 20210815, end: 20210928
  15. TEDUGLUTIDE [Suspect]
     Active Substance: TEDUGLUTIDE
     Dosage: 1.2 MILLIGRAM
     Route: 058
     Dates: start: 20210815, end: 20210928
  16. TEDUGLUTIDE [Suspect]
     Active Substance: TEDUGLUTIDE
     Dosage: 1.2 MILLIGRAM
     Route: 058
     Dates: start: 20210815, end: 20210928

REACTIONS (7)
  - White blood cell count abnormal [Recovered/Resolved]
  - Intestinal obstruction [Recovered/Resolved]
  - Hospitalisation [Recovering/Resolving]
  - Pyrexia [Unknown]
  - Pruritus [Unknown]
  - Oedema peripheral [Unknown]
  - Off label use [Unknown]

NARRATIVE: CASE EVENT DATE: 20210815
